FAERS Safety Report 26068256 (Version 2)
Quarter: 2025Q4

REPORT INFORMATION
  Report Type: Spontaneous
  Country: JP (occurrence: JP)
  Receive Date: 20251120
  Receipt Date: 20251201
  Transmission Date: 20260118
  Serious: Yes (Death, Other)
  Sender: AMGEN
  Company Number: JP-KISSEI-TV20251130_P_1

PATIENT
  Age: 78 Year
  Sex: Male
  Weight: 55.4 kg

DRUGS (20)
  1. TAVNEOS [Suspect]
     Active Substance: AVACOPAN
     Indication: Microscopic polyangiitis
     Dosage: 60 MG, QD
     Route: 048
     Dates: start: 20250725, end: 20250912
  2. SULFAMETHOXAZOLE\TRIMETHOPRIM [Suspect]
     Active Substance: SULFAMETHOXAZOLE\TRIMETHOPRIM
     Indication: Infection prophylaxis
     Dosage: 480 MG, TIW
     Route: 048
     Dates: end: 20250912
  3. PRASUGREL HYDROCHLORIDE [Concomitant]
     Active Substance: PRASUGREL HYDROCHLORIDE
     Indication: Lacunar infarction
     Dosage: .75 MG, QD
     Route: 048
  4. TIAPRIDE [Concomitant]
     Active Substance: TIAPRIDE
     Dosage: 75 MG, QD
     Route: 048
     Dates: end: 202509
  5. LANSOPRAZOLE [Concomitant]
     Active Substance: LANSOPRAZOLE
     Indication: Chronic gastritis
     Dosage: 15 MG, QD
     Route: 065
     Dates: end: 202509
  6. LANSOPRAZOLE [Concomitant]
     Active Substance: LANSOPRAZOLE
     Indication: Gastritis prophylaxis
  7. CILOSTAZOL [Concomitant]
     Active Substance: CILOSTAZOL
     Indication: Lacunar infarction
     Dosage: 100 MG, QD
     Route: 048
     Dates: end: 202509
  8. MEMANTINE HYDROCHLORIDE [Concomitant]
     Active Substance: MEMANTINE HYDROCHLORIDE
     Indication: Lacunar infarction
     Dosage: 10 MG, QD
     Route: 048
     Dates: end: 202509
  9. DOXAZOSIN [Concomitant]
     Active Substance: DOXAZOSIN MESYLATE
     Indication: Hypertension
     Dosage: 0.5 MG, QD
     Route: 048
     Dates: end: 202509
  10. FEBUXOSTAT [Concomitant]
     Active Substance: FEBUXOSTAT
     Indication: Hyperuricaemia
     Dosage: 10 MG, QD
     Route: 048
     Dates: end: 202509
  11. AMITIZA [Concomitant]
     Active Substance: LUBIPROSTONE
     Indication: Constipation
     Dosage: 24 MUG, QD
     Route: 048
     Dates: end: 202509
  12. ATOVAQUONE [Concomitant]
     Active Substance: ATOVAQUONE
     Indication: Infection prophylaxis
     Dosage: 10 MG, QD
     Route: 048
     Dates: end: 20250924
  13. ATOVAQUONE [Concomitant]
     Active Substance: ATOVAQUONE
     Dosage: UNK
     Dates: start: 2025
  14. OLMESARTAN [Concomitant]
     Active Substance: OLMESARTAN
     Dosage: UNK
     Route: 048
  15. AMBROXOL HYDROCHLORIDE [Concomitant]
     Active Substance: AMBROXOL HYDROCHLORIDE
     Dosage: 45 MG, QD
     Route: 048
     Dates: end: 202509
  16. PREDONINE [Concomitant]
     Active Substance: PREDNISOLONE
     Indication: Microscopic polyangiitis
     Dosage: 30 MG, QD
     Route: 065
  17. PREDONINE [Concomitant]
     Active Substance: PREDNISOLONE
     Indication: Cholestasis
     Dosage: 20 MG, QD
     Route: 065
     Dates: start: 20250725
  18. PREDONINE [Concomitant]
     Active Substance: PREDNISOLONE
     Dosage: 15 MG, QD
     Route: 065
     Dates: start: 20250801
  19. PREDONINE [Concomitant]
     Active Substance: PREDNISOLONE
     Dosage: 12.5 MG, QD
     Route: 065
     Dates: start: 20250808
  20. PREDONINE [Concomitant]
     Active Substance: PREDNISOLONE
     Dosage: 35 MG, QD
     Route: 048
     Dates: start: 20251006

REACTIONS (3)
  - Cholestasis [Fatal]
  - Interstitial lung disease [Unknown]
  - Jaundice [Unknown]

NARRATIVE: CASE EVENT DATE: 20250901
